FAERS Safety Report 13229126 (Version 1)
Quarter: 2017Q1

REPORT INFORMATION
  Report Type: Spontaneous
  Country: US (occurrence: US)
  Receive Date: 20170214
  Receipt Date: 20170214
  Transmission Date: 20170428
  Serious: Yes (Other)
  Sender: FDA-Public Use
  Company Number: US-BAXTER-2017BAX005308

PATIENT
  Age: 63 Year
  Sex: Female

DRUGS (11)
  1. CYCLOPHOSPHAMIDE FOR INJECTION, USP [Suspect]
     Active Substance: CYCLOPHOSPHAMIDE
     Indication: BURKITT^S LEUKAEMIA
  2. DEXAMETHASONE. [Suspect]
     Active Substance: DEXAMETHASONE
     Indication: LEUKAEMIA RECURRENT
     Dosage: 6 CYCLES
     Route: 065
  3. DEXAMETHASONE. [Suspect]
     Active Substance: DEXAMETHASONE
     Indication: BURKITT^S LEUKAEMIA
  4. IFOSFAMIDE FOR INJECTION [Suspect]
     Active Substance: IFOSFAMIDE
     Indication: DISEASE PROGRESSION
     Dosage: ONE CYCLE
     Route: 065
  5. VINCRISTINE [Suspect]
     Active Substance: VINCRISTINE
     Indication: BURKITT^S LEUKAEMIA
  6. ETOPOSIDE. [Suspect]
     Active Substance: ETOPOSIDE
     Indication: DISEASE PROGRESSION
     Dosage: ONE CYCLE
     Route: 065
  7. CYCLOPHOSPHAMIDE FOR INJECTION, USP [Suspect]
     Active Substance: CYCLOPHOSPHAMIDE
     Indication: LEUKAEMIA RECURRENT
     Dosage: 6 CYCLES
     Route: 065
  8. VINCRISTINE [Suspect]
     Active Substance: VINCRISTINE
     Indication: LEUKAEMIA RECURRENT
     Dosage: 6 CYCLES
     Route: 065
  9. CARBOPLATIN. [Suspect]
     Active Substance: CARBOPLATIN
     Indication: DISEASE PROGRESSION
     Dosage: ONE CYCLE
     Route: 065
  10. ADRIAMYCIN [Suspect]
     Active Substance: DOXORUBICIN HYDROCHLORIDE
     Indication: LEUKAEMIA RECURRENT
     Dosage: 6 CYCLES
     Route: 065
  11. ADRIAMYCIN [Suspect]
     Active Substance: DOXORUBICIN HYDROCHLORIDE
     Indication: BURKITT^S LEUKAEMIA

REACTIONS (2)
  - Therapy non-responder [Unknown]
  - Disease progression [Unknown]
